FAERS Safety Report 6925422-6 (Version None)
Quarter: 2010Q3

REPORT INFORMATION
  Report Type: 
  Country: None (occurrence: None)
  Receive Date: 20100816
  Receipt Date: 20100806
  Transmission Date: 20110219
  Serious: Yes (Hospitalization)
  Sender: FDA-Public Use
  Company Number: FR-PFIZER INC-2010098911

PATIENT
  Age: 80 Year
  Sex: Male

DRUGS (12)
  1. ALDACTONE [Suspect]
     Indication: CARDIAC FAILURE
     Dosage: 25 MG, 1X/DAY
     Route: 048
     Dates: end: 20100708
  2. BISOPROLOL FUMARATE [Suspect]
     Indication: CARDIAC FAILURE
     Dosage: 2.5 MG, 1X/DAY
     Route: 048
  3. IVABRADINE (PROCORALAN) [Suspect]
     Indication: ANGINA PECTORIS
     Dosage: 5 MG, 2X/DAY
     Route: 048
     Dates: end: 20100708
  4. TRIATEC [Suspect]
     Indication: HYPERTENSION
     Dosage: 5 MG, 1X/DAY
     Route: 048
  5. FUROSEMIDE [Concomitant]
     Dosage: 40 MG
  6. ATORVASTATIN CALCIUM [Concomitant]
     Dosage: 20 MG
  7. PREVISCAN [Concomitant]
     Dosage: 20 MG
  8. CLARITIN [Concomitant]
     Dosage: 10 MG
  9. DUPHALAC [Concomitant]
     Dosage: 2 PER DAY
  10. SPIRIVA [Concomitant]
  11. SERETIDE [Concomitant]
     Dosage: 250 A?G
  12. DOLIPRANE [Concomitant]

REACTIONS (3)
  - ATRIOVENTRICULAR BLOCK COMPLETE [None]
  - HYPERKALAEMIA [None]
  - RENAL FAILURE [None]
